FAERS Safety Report 9552344 (Version 1)
Quarter: 2013Q3

REPORT INFORMATION
  Report Type: Spontaneous
  Country: US (occurrence: None)
  Receive Date: 20130724
  Receipt Date: 20130724
  Transmission Date: 20140515
  Serious: Yes (Hospitalization)
  Sender: FDA-Public Use
  Company Number: PHEH2013US001787

PATIENT
  Age: 65 Year
  Sex: Female

DRUGS (15)
  1. GLEEVEC (IMATINIB) TABLET, 100MG [Suspect]
     Indication: CHRONIC MYELOID LEUKAEMIA
     Route: 048
     Dates: start: 20090922
  2. ASPIRIN (ACETYLSALICYLIC ACID) [Concomitant]
  3. LANTUS (INSULIN GLARGINE) [Concomitant]
  4. ZOLPIDEM (ZOLPIDEM) [Concomitant]
  5. POTASSIUM (POTASSIUM) [Concomitant]
  6. DEXILANT (DEXLANSOPRAZOLE) [Concomitant]
  7. NIACIN (NICOTINIC ACID) [Concomitant]
  8. VITAMIN B (VITAMIN B COMPLEX) [Concomitant]
  9. ALEVE (NAPROXEN SODIUM) [Concomitant]
  10. LASIX (FUROSEMIDE) [Concomitant]
  11. TRAZODONE (TRAZODONE) [Concomitant]
  12. XANAX (ALPROZOLAM) [Concomitant]
  13. GLIMEPIRIDE (GLIMEPIRIDE) [Concomitant]
  14. CYPRO (CYPROHEPTADINE HYDROCHLORIDE) [Concomitant]
  15. DOXICLIN (DOXYCYCLINE HYDROCHLORIDE) [Concomitant]

REACTIONS (6)
  - Atrial fibrillation [None]
  - Pneumonia [None]
  - Ear infection [None]
  - Sensation of heaviness [None]
  - Bone pain [None]
  - Myalgia [None]
